FAERS Safety Report 24021476 (Version 2)
Quarter: 2024Q2

REPORT INFORMATION
  Report Type: Report from Study
  Country: US (occurrence: US)
  Receive Date: 20240627
  Receipt Date: 20240627
  Transmission Date: 20240716
  Serious: No
  Sender: FDA-Public Use
  Company Number: US-ROCHE-3545372

PATIENT
  Age: 73 Year
  Sex: Female
  Weight: 56.7 kg

DRUGS (2)
  1. VABYSMO [Suspect]
     Active Substance: FARICIMAB\FARICIMAB-SVOA
     Indication: Neovascular age-related macular degeneration
     Dosage: NO
     Route: 050
     Dates: start: 2022, end: 202309
  2. VABYSMO [Suspect]
     Active Substance: FARICIMAB\FARICIMAB-SVOA
     Dosage: NO
     Route: 050

REACTIONS (4)
  - Visual impairment [Not Recovered/Not Resolved]
  - COVID-19 [Recovered/Resolved]
  - Laryngitis [Recovered/Resolved]
  - Vision blurred [Unknown]

NARRATIVE: CASE EVENT DATE: 20230901
